FAERS Safety Report 8036494-2 (Version None)
Quarter: 2012Q1

REPORT INFORMATION
  Report Type: 
  Country: None (occurrence: None)
  Receive Date: 20120111
  Receipt Date: 20120105
  Transmission Date: 20120608
  Serious: Yes (Hospitalization)
  Sender: FDA-Public Use
  Company Number: US-JNJFOC-20120101707

PATIENT
  Sex: Female
  Weight: 31.4 kg

DRUGS (3)
  1. REMICADE [Suspect]
     Route: 042
     Dates: start: 20090911
  2. METRONIDAZOLE [Concomitant]
  3. REMICADE [Suspect]
     Indication: INFLAMMATORY BOWEL DISEASE
     Dosage: MOST RECENT INFUSION WAS ON 11-SEP-2009.
     Route: 042
     Dates: start: 20090731

REACTIONS (3)
  - DEHYDRATION [None]
  - DIARRHOEA [None]
  - SYNCOPE [None]
